FAERS Safety Report 8709301 (Version 2)
Quarter: 2012Q4

REPORT INFORMATION
  Report Type: 
  Country: US (occurrence: US)
  Receive Date: 20120806
  Receipt Date: 20121031
  Transmission Date: 20130627
  Serious: Yes (Hospitalization)
  Sender: FDA-Public Use
  Company Number: US-ASTRAZENECA-2012SE53724

PATIENT
  Age: 989 Month
  Sex: Female
  Weight: 65.8 kg

DRUGS (7)
  1. SYMBICORT PMDI [Suspect]
     Indication: CHRONIC OBSTRUCTIVE PULMONARY DISEASE
     Dosage: 80/4.5ug two puffs two times daily
     Route: 055
  2. CALCIUM [Concomitant]
     Indication: MINERAL SUPPLEMENTATION
     Dosage: DAILY
     Route: 048
  3. COUMADIN [Concomitant]
     Indication: AORTIC VALVE DISEASE
     Route: 048
  4. COUMADIN [Concomitant]
     Indication: AORTIC VALVE DISEASE
     Route: 048
  5. HCTZ [Concomitant]
     Indication: SWELLING
     Route: 048
  6. DILTIAZEM [Concomitant]
     Indication: CARDIAC DISORDER
     Route: 048
  7. ATENOLOL [Concomitant]
     Indication: BLOOD PRESSURE ABNORMAL
     Route: 048

REACTIONS (2)
  - Haemoglobin decreased [Unknown]
  - Off label use [Unknown]
